FAERS Safety Report 25521379 (Version 4)
Quarter: 2025Q4

REPORT INFORMATION
  Report Type: Other
  Country: US (occurrence: US)
  Receive Date: 20250705
  Receipt Date: 20251025
  Transmission Date: 20260117
  Serious: No
  Sender: TRAVERE THERAPEUTICS
  Company Number: US-TRAVERE-2025TVT00935

PATIENT
  Age: 70 Year
  Sex: Male

DRUGS (1)
  1. FILSPARI [Suspect]
     Active Substance: SPARSENTAN
     Indication: IgA nephropathy
     Route: 048
     Dates: start: 20250522

REACTIONS (6)
  - Abdominal discomfort [None]
  - Fatigue [None]
  - Asthenia [None]
  - Decreased appetite [Unknown]
  - Nausea [Unknown]
  - Product administration error [Unknown]

NARRATIVE: CASE EVENT DATE: 20250522
